FAERS Safety Report 25834662 (Version 2)
Quarter: 2025Q4

REPORT INFORMATION
  Report Type: Spontaneous
  Country: US (occurrence: US)
  Receive Date: 20250923
  Receipt Date: 20251223
  Transmission Date: 20260118
  Serious: Yes (Death, Other)
  Sender: RADIUS PHARM
  Company Number: US-RADIUS HEALTH INC.-US-RADIUS-25053889

PATIENT
  Age: 81 Year
  Sex: Female

DRUGS (14)
  1. TYMLOS [Suspect]
     Active Substance: ABALOPARATIDE
     Indication: Osteoporosis
     Dosage: 80 MICROGRAM, QD
     Route: 058
     Dates: start: 20240505
  2. TYMLOS [Suspect]
     Active Substance: ABALOPARATIDE
     Indication: Pathological fracture
  3. ELIQUIS [Concomitant]
     Active Substance: APIXABAN
     Indication: Atrial fibrillation
     Dosage: 2.5 MILLIGRAM, BID
     Route: 048
  4. HALFPRIN [ACETYLSALICYLIC ACID] [Concomitant]
     Indication: Product used for unknown indication
     Dosage: 1 TABLET (81 MG) BY MOUTH DAILY FOR 173 DOSES
     Route: 048
  5. BUMEX [Concomitant]
     Active Substance: BUMETANIDE
     Indication: Product used for unknown indication
     Dosage: 1 DOSAGE FORM, QD
     Route: 048
  6. XALATAN [Concomitant]
     Active Substance: LATANOPROST
     Indication: Product used for unknown indication
     Dosage: 1 DROP INTO BOTH EYES AT BEDTIME
     Route: 047
  7. LIDODERM [Concomitant]
     Active Substance: LIDOCAINE
     Indication: Product used for unknown indication
     Dosage: 1 PATCH ONTO THE SKIN EVERY 24 HOURS
     Route: 061
  8. ZAROXOLYN [Concomitant]
     Active Substance: METOLAZONE
     Indication: Product used for unknown indication
     Dosage: 1 TABLET (5 MG) BY MOUTH EVERY MONDAY, WEDNESDAY AND FRIDAY, TAKE ONE TABLET 30 MINS PRIOR TO FIRST
     Route: 048
  9. VITAMINS NOS [Concomitant]
     Active Substance: VITAMINS
     Indication: Product used for unknown indication
     Dosage: 1 DOSAGE FORM, QD
     Route: 048
  10. PROTONIX [Concomitant]
     Active Substance: PANTOPRAZOLE SODIUM
     Indication: Product used for unknown indication
     Dosage: 1 DOSAGE FORM, QD
     Route: 048
  11. CALCIUM CITRATE [Concomitant]
     Active Substance: CALCIUM CITRATE
     Indication: Product used for unknown indication
     Dosage: 1200 MILLIGRAM, QD
  12. VITAMIN D3 [Concomitant]
     Active Substance: CHOLECALCIFEROL
     Indication: Product used for unknown indication
     Dosage: 1000 INTERNATIONAL UNIT, QD
  13. K DUR [Concomitant]
     Indication: Product used for unknown indication
     Dosage: 1 DOSAGE FORM, QD
     Route: 048
  14. CALCIUM CARBONATE\VITAMIN D [Concomitant]
     Active Substance: CALCIUM CARBONATE\VITAMIN D
     Indication: Product used for unknown indication
     Dosage: UNK, QD
     Route: 048

REACTIONS (11)
  - Death [Fatal]
  - Cardiac failure [Unknown]
  - Acute kidney injury [Unknown]
  - Pneumonia [Unknown]
  - Upper gastrointestinal haemorrhage [Unknown]
  - Anaemia [Unknown]
  - Faecal occult blood positive [Unknown]
  - Pleural effusion [Unknown]
  - Peripheral swelling [Unknown]
  - Aortic valve stenosis [Unknown]
  - Bradycardia [Unknown]

NARRATIVE: CASE EVENT DATE: 20250430
